FAERS Safety Report 5804934-2 (Version None)
Quarter: 2008Q3

REPORT INFORMATION
  Report Type: 
  Country: None (occurrence: None)
  Receive Date: 20080709
  Receipt Date: 20080703
  Transmission Date: 20090109
  Serious: Yes (Other)
  Sender: FDA-Public Use
  Company Number: GB-WYE-G01810508

PATIENT
  Sex: Female

DRUGS (3)
  1. EFFEXOR XR [Suspect]
     Route: 048
     Dates: start: 20080128
  2. ATORVASTATIN CALCIUM [Concomitant]
     Dosage: UNKNOWN
  3. GLICLAZIDE [Concomitant]
     Dosage: UNKNOWN

REACTIONS (1)
  - BREAST MASS [None]
